FAERS Safety Report 16997826 (Version 3)
Quarter: 2020Q3

REPORT INFORMATION
  Report Type: Spontaneous
  Country: US (occurrence: US)
  Receive Date: 20191106
  Receipt Date: 20200807
  Transmission Date: 20201102
  Serious: Yes (Death, Other)
  Sender: FDA-Public Use
  Company Number: US-ASTRAZENECA-2019SF56726

PATIENT
  Age: 699 Month
  Sex: Male

DRUGS (58)
  1. RAMIPRIL. [Concomitant]
     Active Substance: RAMIPRIL
     Route: 048
     Dates: start: 20161022
  2. ONDANSETRON [Concomitant]
     Active Substance: ONDANSETRON
     Route: 048
     Dates: start: 20161111
  3. HEPARIN [Concomitant]
     Active Substance: HEPARIN SODIUM
  4. MULTIVITAMIN [Concomitant]
     Active Substance: VITAMINS
  5. DIGESTIVE ENZYMES [Concomitant]
     Active Substance: UNSPECIFIED INGREDIENT
  6. COSOPT [Concomitant]
     Active Substance: DORZOLAMIDE HYDROCHLORIDE\TIMOLOL MALEATE
     Route: 065
     Dates: start: 20160128
  7. ZYLET [Concomitant]
     Active Substance: LOTEPREDNOL ETABONATE\TOBRAMYCIN
     Route: 065
     Dates: start: 20180819
  8. MIDAZOLAM. [Concomitant]
     Active Substance: MIDAZOLAM
     Dates: start: 20161107, end: 20161107
  9. XYLOCAINE [Concomitant]
     Active Substance: LIDOCAINE HYDROCHLORIDE
     Dates: start: 20161107, end: 20161107
  10. OMEPRAZOLE. [Suspect]
     Active Substance: OMEPRAZOLE
     Indication: GASTROOESOPHAGEAL REFLUX DISEASE
     Route: 048
     Dates: start: 201504, end: 2016
  11. PANTOPRAZOLE [Suspect]
     Active Substance: PANTOPRAZOLE
     Indication: GASTROOESOPHAGEAL REFLUX DISEASE
     Route: 048
     Dates: start: 20160826
  12. TUMS [Concomitant]
     Active Substance: CALCIUM CARBONATE
     Route: 065
  13. PEPTO?BISMOL [Concomitant]
     Active Substance: BISMUTH SUBSALICYLATE
     Route: 065
  14. TRAVATAN [Concomitant]
     Active Substance: TRAVOPROST
     Route: 065
     Dates: start: 20170121
  15. ALLEGRA [Concomitant]
     Active Substance: FEXOFENADINE HYDROCHLORIDE
     Route: 065
     Dates: start: 20110503
  16. POLYETHYLENE GLYCOL [Concomitant]
     Active Substance: POLYETHYLENE GLYCOLS
     Route: 048
  17. DIAZEPAM. [Concomitant]
     Active Substance: DIAZEPAM
     Route: 048
  18. AMOX TR?K CL [Concomitant]
     Route: 065
  19. MEFLOQUINE [Concomitant]
     Active Substance: MEFLOQUINE
     Route: 048
     Dates: start: 20071221
  20. LATANOPROST. [Concomitant]
     Active Substance: LATANOPROST
     Route: 065
     Dates: start: 20180216
  21. OMEPRAZOLE. [Suspect]
     Active Substance: OMEPRAZOLE
     Indication: GASTROOESOPHAGEAL REFLUX DISEASE
     Route: 048
     Dates: start: 201206, end: 2013
  22. OMEPRAZOLE. [Suspect]
     Active Substance: OMEPRAZOLE
     Indication: GASTROOESOPHAGEAL REFLUX DISEASE
     Route: 048
     Dates: start: 20120104
  23. HYDROCHLOROTHIAZIDE. [Concomitant]
     Active Substance: HYDROCHLOROTHIAZIDE
     Route: 048
     Dates: start: 20161119
  24. ATROPINE SULFATE. [Concomitant]
     Active Substance: ATROPINE SULFATE
     Route: 065
     Dates: start: 20120127
  25. CEFAZOLIN [Concomitant]
     Active Substance: CEFAZOLIN
     Dates: start: 20161107, end: 20161107
  26. OMEPRAZOLE. [Suspect]
     Active Substance: OMEPRAZOLE
     Indication: GASTROOESOPHAGEAL REFLUX DISEASE
     Route: 048
     Dates: start: 20120110
  27. TAGAMET [Concomitant]
     Active Substance: CIMETIDINE
     Dosage: HB (OTC)
     Route: 065
  28. BISACODYL. [Concomitant]
     Active Substance: BISACODYL
     Route: 048
  29. FLUTICASONE. [Concomitant]
     Active Substance: FLUTICASONE
     Route: 065
     Dates: start: 20150908
  30. NAPROXEN SODIUM. [Concomitant]
     Active Substance: NAPROXEN SODIUM
     Route: 048
     Dates: start: 20140825
  31. DOXYCYCLINE. [Concomitant]
     Active Substance: DOXYCYCLINE
     Route: 048
  32. METOPROLOL. [Concomitant]
     Active Substance: METOPROLOL
     Route: 065
  33. VITAMIN D3 [Concomitant]
     Active Substance: CHOLECALCIFEROL
     Route: 048
  34. FENTANYL. [Concomitant]
     Active Substance: FENTANYL
     Dates: start: 20161107, end: 20161107
  35. OMEPRAZOLE. [Suspect]
     Active Substance: OMEPRAZOLE
     Indication: GASTROOESOPHAGEAL REFLUX DISEASE
     Route: 048
     Dates: start: 20120104, end: 20170306
  36. MAALOX ANTACID [Concomitant]
     Active Substance: ALUMINUM HYDROXIDE\DIMETHICONE\MAGNESIUM HYDROXIDE
     Route: 065
  37. AMOXICILLIN. [Concomitant]
     Active Substance: AMOXICILLIN
     Route: 048
  38. MUPIROCIN. [Concomitant]
     Active Substance: MUPIROCIN
     Route: 065
     Dates: start: 20170112
  39. CAPECITABINE. [Concomitant]
     Active Substance: CAPECITABINE
     Route: 048
     Dates: start: 20180118
  40. MARCAINE [Concomitant]
     Active Substance: BUPIVACAINE HYDROCHLORIDE
     Dates: start: 20161107, end: 20161107
  41. FOLFOX [Concomitant]
     Active Substance: FLUOROURACIL\LEUCOVORIN CALCIUM\OXALIPLATIN
  42. OMEPRAZOLE. [Suspect]
     Active Substance: OMEPRAZOLE
     Indication: GASTROOESOPHAGEAL REFLUX DISEASE
     Route: 048
     Dates: start: 201201, end: 201206
  43. ALPHAGAN P [Concomitant]
     Active Substance: BRIMONIDINE TARTRATE
     Route: 065
     Dates: start: 20170206
  44. DUREZOL [Concomitant]
     Active Substance: DIFLUPREDNATE
     Route: 065
  45. MECLIZINE [Concomitant]
     Active Substance: MECLIZINE HYDROCHLORIDE
     Route: 048
     Dates: start: 20150319
  46. COMPAZINE [Concomitant]
     Active Substance: PROCHLORPERAZINE MALEATE
     Route: 048
     Dates: start: 20180118
  47. OXALIPLATIN. [Concomitant]
     Active Substance: OXALIPLATIN
  48. PANTOPRAZOLE [Suspect]
     Active Substance: PANTOPRAZOLE
     Indication: GASTROOESOPHAGEAL REFLUX DISEASE
     Route: 065
     Dates: start: 20120104, end: 20170306
  49. PANTOPRAZOLE [Suspect]
     Active Substance: PANTOPRAZOLE
     Indication: GASTROOESOPHAGEAL REFLUX DISEASE
     Route: 065
     Dates: start: 201608, end: 201703
  50. VIGAMOX [Concomitant]
     Active Substance: MOXIFLOXACIN HYDROCHLORIDE
     Route: 065
     Dates: start: 20150529
  51. ACETAZOLAMIDE. [Concomitant]
     Active Substance: ACETAZOLAMIDE
     Route: 048
     Dates: start: 20120728
  52. CHLOROQUINE. [Concomitant]
     Active Substance: CHLOROQUINE
     Route: 048
     Dates: start: 20060214
  53. TRAMADOL. [Concomitant]
     Active Substance: TRAMADOL
     Route: 048
     Dates: start: 20171229
  54. VITAMIN E [Concomitant]
     Active Substance: .ALPHA.-TOCOPHEROL
  55. EPIRUBICIN [Concomitant]
     Active Substance: EPIRUBICIN
  56. DICLOXACILLIN [Concomitant]
     Active Substance: DICLOXACILLIN
     Route: 048
  57. NABUMETONE. [Concomitant]
     Active Substance: NABUMETONE
     Route: 048
  58. PREDNISOLONE. [Concomitant]
     Active Substance: PREDNISOLONE
     Route: 065
     Dates: start: 20190529

REACTIONS (5)
  - Cardio-respiratory arrest [Fatal]
  - Metastatic gastric cancer [Fatal]
  - Hepatic failure [Fatal]
  - Metastases to lymph nodes [Unknown]
  - Adenocarcinoma gastric [Unknown]

NARRATIVE: CASE EVENT DATE: 201610
